FAERS Safety Report 8046127-7 (Version None)
Quarter: 2012Q1

REPORT INFORMATION
  Report Type: 
  Country: None (occurrence: None)
  Receive Date: 20120113
  Receipt Date: 20120109
  Transmission Date: 20120608
  Serious: No
  Sender: FDA-Public Use
  Company Number: US-PFIZER INC-2012007098

PATIENT
  Sex: Female

DRUGS (1)
  1. EFFEXOR [Suspect]
     Dosage: UNK

REACTIONS (5)
  - HYPERHIDROSIS [None]
  - INFLUENZA LIKE ILLNESS [None]
  - ANXIETY [None]
  - WITHDRAWAL SYNDROME [None]
  - FATIGUE [None]
